FAERS Safety Report 9238854 (Version 1)
Quarter: 2013Q1

REPORT INFORMATION
  Report Type: Spontaneous
  Country: US (occurrence: None)
  Receive Date: 20121107
  Receipt Date: 20121107
  Transmission Date: 20140127
  Serious: No
  Sender: FDA-Public Use
  Company Number: 2012HGS-003846

PATIENT
  Age: 60 Year
  Sex: Female

DRUGS (16)
  1. BENLYSTA [Suspect]
     Route: 041
     Dates: start: 20120724
  2. BABY ASPIRIN (ACETYLSALICYLIC ACID) (ACETYLSALICYLIC ACID) [Concomitant]
  3. VITAMIN D (ERGOCALCIFEROL) (ERGOCALCIFEROL) [Concomitant]
  4. ALBUTEROL (SALBUTAMOL) (SALBUTAMOL) [Concomitant]
  5. VIIBRYD (VILAZODONE HYDROCHLORIDE) (VILAZODONE HYDROCHLORIDE) [Concomitant]
  6. WELLBUTRIN (BUPROPION HYDROCHLORIDE) (BUPROPION HYDROCHLORIDE) [Concomitant]
  7. MIRAPEX (PRAMIPEXOLE DIHROCHLORIDE) (PRAMIPEXOLE DIHYDROCHLORIDE) [Concomitant]
  8. KLONOPIN [Concomitant]
  9. MAXIDEX (DEXAMETHASONE) (DEXAMETHASONE) [Concomitant]
  10. FOLIC ACID (FOLIC ACID) (FOLIC ACID) [Concomitant]
  11. PLAQUENIL (HYDROXYCHLOROQUINE PHOSPHATE) (HYDROXYCHLOROQUINE PHOSPHATE) [Concomitant]
  12. RELAFEN (NABUMETONE) (NABUMETONE) [Concomitant]
  13. VICODIN (VICODIN) (PARACETAMOL, HYDROCODONE BITARTRATE) [Concomitant]
  14. OXYCONTIN (OXYCODONE HYDROCHLORIDE) (OXYCODONE HYDROCHLORIDE) [Concomitant]
  15. PERCOCET (TYLOX/00446701/) (PARACETAMOL, OXYCODONE HYDROCHLORDIE, OXYCODONE TEREPHTHALATE) [Concomitant]
  16. METRONIDAZOLE (METRONIDAZOLE) (METRONIDAZOLE) [Concomitant]

REACTIONS (1)
  - Pruritus [None]
